FAERS Safety Report 23484074 (Version 2)
Quarter: 2024Q1

REPORT INFORMATION
  Report Type: Spontaneous
  Country: GB (occurrence: GB)
  Receive Date: 20240205
  Receipt Date: 20240223
  Transmission Date: 20240410
  Serious: Yes (Life-Threatening)
  Sender: FDA-Public Use
  Company Number: None

PATIENT

DRUGS (2)
  1. DICLOFENAC [Suspect]
     Active Substance: DICLOFENAC
     Indication: Ill-defined disorder
     Dosage: UNK
     Dates: start: 20240202
  2. METHADONE [Concomitant]
     Active Substance: METHADONE HYDROCHLORIDE
     Indication: Ill-defined disorder
     Dosage: 30 ML (30.0 MILLILITRES (30.0 MILLILITRES SUPERVISED))
     Dates: start: 20231214, end: 20231221

REACTIONS (1)
  - Rash [Recovered/Resolved]

NARRATIVE: CASE EVENT DATE: 20240202
